FAERS Safety Report 6083142-7 (Version None)
Quarter: 2009Q1

REPORT INFORMATION
  Report Type: 
  Country: None (occurrence: None)
  Receive Date: 20090213
  Receipt Date: 20090213
  Transmission Date: 20090719
  Serious: Yes (Death, Life-Threatening)
  Sender: FDA-Public Use
  Company Number: None

PATIENT
  Age: 30 Year
  Sex: Female
  Weight: 122.4712 kg

DRUGS (2)
  1. GEODON [Suspect]
     Indication: DEPRESSION
     Dosage: 40 MG TWICE A DAY PLUS OTHER MEDICATION 12 PILLS IN A BOX
     Dates: start: 20081024
  2. GEODON [Suspect]

REACTIONS (3)
  - DRUG INTERACTION [None]
  - DYSPNOEA [None]
  - MYOCARDIAL INFARCTION [None]
